FAERS Safety Report 5852808-3 (Version None)
Quarter: 2008Q3

REPORT INFORMATION
  Report Type: 
  Country: None (occurrence: None)
  Receive Date: 20080821
  Receipt Date: 20080814
  Transmission Date: 20090109
  Serious: Yes (Hospitalization)
  Sender: FDA-Public Use
  Company Number: GB-ROCHE-581039

PATIENT
  Sex: Male
  Weight: 108.8 kg

DRUGS (5)
  1. ORLISTAT [Suspect]
     Indication: OBESITY
     Route: 048
     Dates: start: 20080318
  2. BISOPROLOL FUMARATE [Concomitant]
     Indication: BLOOD PRESSURE
     Route: 048
  3. EZETIMIBE [Concomitant]
     Route: 048
  4. PERINDOPRIL ERBUMINE [Concomitant]
     Indication: BLOOD PRESSURE
     Route: 048
  5. SIMVASTATIN [Concomitant]
     Route: 048

REACTIONS (3)
  - DYSPNOEA [None]
  - GASTRIC INFECTION [None]
  - MUSCULOSKELETAL CHEST PAIN [None]
